APPROVED DRUG PRODUCT: GABAPENTIN
Active Ingredient: GABAPENTIN
Strength: 800MG
Dosage Form/Route: TABLET;ORAL
Application: A209306 | Product #002
Applicant: LUPIN LTD
Approved: Aug 24, 2018 | RLD: No | RS: No | Type: DISCN